FAERS Safety Report 8847160 (Version 1)
Quarter: 2012Q4

REPORT INFORMATION
  Report Type: 
  Country: BR (occurrence: BR)
  Receive Date: 20121018
  Receipt Date: 20121018
  Transmission Date: 20130627
  Serious: Yes (Disabling, Other)
  Sender: FDA-Public Use
  Company Number: BR-BAYER-2012-104516

PATIENT
  Age: 51 Year
  Sex: Female

DRUGS (19)
  1. BETAFERON [Suspect]
     Indication: MULTIPLE SCLEROSIS
     Dosage: 3 ml, QOD
     Route: 058
     Dates: start: 20120828
  2. TYLENOL [PARACETAMOL] [Concomitant]
     Indication: PREMEDICATION
     Dosage: 1 Df before inj. and 1 DF after inj.
     Route: 048
     Dates: start: 20120828
  3. TYLENOL [PARACETAMOL] [Concomitant]
     Indication: PYREXIA
     Dosage: UNK
     Route: 048
     Dates: start: 20120828
  4. TYLENOL [PARACETAMOL] [Concomitant]
     Indication: PAIN
     Dosage: UNK
     Route: 048
     Dates: start: 2012
  5. AMLODIPINE BESYLATE [Concomitant]
     Indication: HYPERTENSION
     Dosage: 1 DF, QD
     Route: 048
     Dates: start: 201206
  6. DIGEPLUS [Concomitant]
     Indication: LAXATIVE SUPPORTIVE CARE
     Dosage: 2 DF, QD
     Route: 048
     Dates: start: 20120829
  7. SUSTRATE [Concomitant]
     Indication: ANGINA PECTORIS
     Dosage: 2 DF, QD
     Route: 048
  8. SUSTRATE [Concomitant]
     Indication: HYPERTENSION
  9. RIVOTRIL [Concomitant]
     Indication: HYPERTENSION
     Dosage: 0.25 mg, PRN
     Route: 048
  10. HIDANTAL [Concomitant]
     Indication: CEREBROVASCULAR ACCIDENT
     Dosage: 3 DF, QD
     Route: 048
     Dates: start: 1994
  11. HIDANTAL [Concomitant]
     Indication: NEUROCYSTICERCOSIS
  12. HIDANTAL [Concomitant]
     Indication: CONVULSION
  13. DIOVAN [Concomitant]
     Indication: HYPERTENSION
     Dosage: 2 DF, QD
     Route: 048
     Dates: start: 1994
  14. AMITRIPTYLINE [Concomitant]
     Indication: DEPRESSION
     Dosage: 1 DF, QD
     Route: 048
     Dates: start: 201111
  15. LASIX [Concomitant]
     Indication: DIURETIC THERAPY
     Dosage: 1 DF, QD
     Route: 048
  16. OMEPRAZOLE [Concomitant]
     Indication: PROPHYLAXIS
     Dosage: 1 DF, UNK
     Route: 048
     Dates: start: 2004
  17. PLASIL [Concomitant]
     Indication: NAUSEA
     Dosage: 1 DF, BID
     Route: 048
     Dates: start: 2012
  18. CLORANA [Concomitant]
     Indication: HYPERTENSION
     Route: 048
  19. TRYPTANOL [Concomitant]
     Indication: DEPRESSION
     Dosage: 1 DF, HS
     Route: 048
     Dates: start: 2012

REACTIONS (14)
  - Blood pressure increased [Recovered/Resolved]
  - Pyrexia [Not Recovered/Not Resolved]
  - Nausea [Recovered/Resolved]
  - Hypoglycaemia [Recovered/Resolved]
  - Feeling abnormal [Recovered/Resolved]
  - Palpitations [Not Recovered/Not Resolved]
  - Vomiting [Not Recovered/Not Resolved]
  - Pain [Not Recovered/Not Resolved]
  - Myalgia [Not Recovered/Not Resolved]
  - Asthenia [Not Recovered/Not Resolved]
  - Nervousness [Not Recovered/Not Resolved]
  - Mobility decreased [Not Recovered/Not Resolved]
  - Headache [Not Recovered/Not Resolved]
  - Gait disturbance [Not Recovered/Not Resolved]
